FAERS Safety Report 10085556 (Version 2)
Quarter: 2014Q2

REPORT INFORMATION
  Report Type: Report from Study
  Country: GB (occurrence: GB)
  Receive Date: 20140418
  Receipt Date: 20140423
  Transmission Date: 20141212
  Serious: Yes (Hospitalization)
  Sender: FDA-Public Use
  Company Number: GB-009507513-1404GBR008956

PATIENT
  Age: 62 Year
  Sex: Male
  Weight: 86.6 kg

DRUGS (3)
  1. DEXAMETHASONE TABLETS BP 500MCG [Suspect]
     Indication: PLASMA CELL MYELOMA
     Dosage: 40 MG/DAY FOR 4 DAYS/28
     Route: 048
     Dates: start: 20130909, end: 20131224
  2. MLN9708 [Suspect]
     Indication: PLASMA CELL MYELOMA
     Dosage: DAILY DOSE OF 4MG FOR 4 DAYS/28
     Route: 048
     Dates: start: 20130909, end: 20131224
  3. REVLIMID [Suspect]
     Indication: PLASMA CELL MYELOMA
     Dosage: 25MG/DAY FOR 21DAYS/28
     Route: 048
     Dates: start: 20130909, end: 20131224

REACTIONS (1)
  - Lower respiratory tract infection [Not Recovered/Not Resolved]
